FAERS Safety Report 11577875 (Version 1)
Quarter: 2015Q3

REPORT INFORMATION
  Report Type: Spontaneous
  Country: GB (occurrence: GB)
  Receive Date: 20150930
  Receipt Date: 20150930
  Transmission Date: 20151125
  Serious: Yes (Other)
  Sender: FDA-Public Use
  Company Number: GB-ASTRAZENECA-2015SE91674

PATIENT
  Age: 63 Year
  Sex: Male
  Weight: 96.1 kg

DRUGS (6)
  1. SIMVASTATIN. [Concomitant]
     Active Substance: SIMVASTATIN
  2. DAPAGLIFLOZIN [Suspect]
     Active Substance: DAPAGLIFLOZIN
     Indication: INSULIN-REQUIRING TYPE 2 DIABETES MELLITUS
     Route: 048
     Dates: start: 20150717, end: 20150831
  3. LEVEMIR [Concomitant]
     Active Substance: INSULIN DETEMIR
  4. BISOPROLOL [Concomitant]
     Active Substance: BISOPROLOL
  5. NOVORAPID [Concomitant]
     Active Substance: INSULIN ASPART
  6. TAMSULOSIN HYDROCHLORIDE. [Concomitant]
     Active Substance: TAMSULOSIN HYDROCHLORIDE

REACTIONS (2)
  - Cerebral haematoma [Recovering/Resolving]
  - Intracranial pressure increased [Unknown]

NARRATIVE: CASE EVENT DATE: 20150831
